FAERS Safety Report 15131149 (Version 1)
Quarter: 2018Q3

REPORT INFORMATION
  Report Type: Spontaneous
  Country: US (occurrence: US)
  Receive Date: 20180711
  Receipt Date: 20180711
  Transmission Date: 20181010
  Serious: No
  Sender: FDA-Public Use
  Company Number: US-NEOS THERAPEUTICS, LP-2018NEO00067

PATIENT
  Sex: Male

DRUGS (2)
  1. COTEMPLA XR?ODT [Suspect]
     Active Substance: METHYLPHENIDATE
     Route: 048
  2. COTEMPLA XR?ODT [Suspect]
     Active Substance: METHYLPHENIDATE
     Route: 048

REACTIONS (1)
  - Retching [Unknown]
